FAERS Safety Report 9542001 (Version 4)
Quarter: 2014Q4

REPORT INFORMATION
  Report Type: Spontaneous
  Country: US (occurrence: US)
  Receive Date: 20130923
  Receipt Date: 20141203
  Transmission Date: 20150529
  Serious: Yes (Hospitalization, Other)
  Sender: FDA-Public Use
  Company Number: US-BAYER-2013-110499

PATIENT
  Age: 39 Year
  Sex: Female
  Weight: 57 kg

DRUGS (1)
  1. MIRENA [Suspect]
     Active Substance: LEVONORGESTREL
     Indication: CONTRACEPTION
     Dosage: 20 MCG/24HR, CONT
     Route: 015
     Dates: start: 20050706, end: 20080131

REACTIONS (15)
  - Off label use [None]
  - Hypomenorrhoea [None]
  - Medical device discomfort [None]
  - Drug ineffective [None]
  - Urinary tract infection [None]
  - Uterine perforation [None]
  - Abortion spontaneous [None]
  - Pregnancy with contraceptive device [None]
  - Vaginal haemorrhage [None]
  - Medical device complication [None]
  - Depressed mood [None]
  - Fungal infection [None]
  - Injury [None]
  - Pain [None]
  - Device issue [None]

NARRATIVE: CASE EVENT DATE: 200712
